FAERS Safety Report 5128900-8 (Version None)
Quarter: 2006Q4

REPORT INFORMATION
  Report Type: 
  Country: None (occurrence: None)
  Receive Date: 20061011
  Receipt Date: 20061009
  Transmission Date: 20070319
  Serious: Yes (Death, Hospitalization)
  Sender: FDA-Public Use
  Company Number: HQWYE532409JUN03

PATIENT
  Age: 66 Year
  Sex: Female
  Weight: 68.55 kg

DRUGS (13)
  1. MYLOTARG [Suspect]
     Indication: ACUTE MYELOID LEUKAEMIA
     Dosage: 9 MG/M^2 1X PER 1 DAY, INTRAVENOUS
     Route: 042
     Dates: start: 20030605, end: 20030605
  2. CIPRO [Concomitant]
  3. DIFLUCAN [Concomitant]
  4. ACYCLOVIR [Concomitant]
  5. PROZAC [Concomitant]
  6. LOPRESSOR [Concomitant]
  7. PREVACID [Concomitant]
  8. COUMADIN [Concomitant]
  9. MULTIVIT (VITAMINS NOS) [Concomitant]
  10. SENOKOT [Concomitant]
  11. HEPARIN [Concomitant]
  12. AZACTAM [Concomitant]
  13. CLINDAMYCIN (CLINDAMYCIN) [Concomitant]

REACTIONS (15)
  - ACUTE MYELOID LEUKAEMIA [None]
  - ASPARTATE AMINOTRANSFERASE INCREASED [None]
  - BLOOD ALKALINE PHOSPHATASE INCREASED [None]
  - BLOOD BILIRUBIN INCREASED [None]
  - DISEASE PROGRESSION [None]
  - FEBRILE NEUTROPENIA [None]
  - FLUID OVERLOAD [None]
  - HAEMOGLOBIN DECREASED [None]
  - INFUSION RELATED REACTION [None]
  - PLATELET COUNT DECREASED [None]
  - PNEUMONIA FUNGAL [None]
  - PULMONARY OEDEMA [None]
  - RENAL FAILURE [None]
  - THERAPY NON-RESPONDER [None]
  - WEIGHT INCREASED [None]
